FAERS Safety Report 15424357 (Version 1)
Quarter: 2018Q3

REPORT INFORMATION
  Report Type: Spontaneous
  Country: US (occurrence: US)
  Receive Date: 20180925
  Receipt Date: 20180925
  Transmission Date: 20181010
  Serious: No
  Sender: FDA-Public Use
  Company Number: US-SA-2018SA264002

PATIENT
  Age: 60 Year
  Sex: Male

DRUGS (5)
  1. NORVASC [Concomitant]
     Active Substance: AMLODIPINE BESYLATE
  2. PLAQUENIL [HYDROXYCHLOROQUINE PHOSPHATE] [Concomitant]
     Active Substance: HYDROXYCHLOROQUINE DIPHOSPHATE
  3. LISINOPRIL. [Concomitant]
     Active Substance: LISINOPRIL
  4. CARVEDILOL. [Concomitant]
     Active Substance: CARVEDILOL
  5. KEVZARA [Suspect]
     Active Substance: SARILUMAB
     Dosage: 1 DF, QOW
     Route: 058
     Dates: start: 20180601

REACTIONS (3)
  - Joint stiffness [Unknown]
  - Arthralgia [Unknown]
  - Fine motor skill dysfunction [Unknown]
